FAERS Safety Report 20761811 (Version 1)
Quarter: 2022Q2

REPORT INFORMATION
  Report Type: Spontaneous
  Country: US (occurrence: None)
  Receive Date: 20220427
  Receipt Date: 20220427
  Transmission Date: 20220721
  Serious: Yes (Hospitalization)
  Sender: FDA-Public Use
  Company Number: None

PATIENT
  Age: 70 Year
  Sex: Female
  Weight: 112.49 kg

DRUGS (14)
  1. TEMOZOLOMIDE [Suspect]
     Active Substance: TEMOZOLOMIDE
     Indication: Brain neoplasm malignant
     Dosage: FREQUENCY : DAILY;?
     Route: 048
  2. ASPIRIN [Concomitant]
     Active Substance: ASPIRIN
  3. CARVEDILOL [Concomitant]
  4. COLCHICINE [Concomitant]
     Active Substance: COLCHICINE
  5. DEXAMETHASONE [Concomitant]
     Active Substance: DEXAMETHASONE
  6. DOCUSATE SODIUM [Concomitant]
  7. ELIQUIS [Concomitant]
     Active Substance: APIXABAN
  8. FOLIC ACID [Concomitant]
     Active Substance: FOLIC ACID
  9. LEVETIRACETAM [Concomitant]
  10. LIDOCAINE [Concomitant]
     Active Substance: LIDOCAINE
  11. LOSARTAN POTASSIUM [Concomitant]
  12. PRAVACHOL [Concomitant]
  13. VITAMIN C [Concomitant]
     Active Substance: ASCORBIC ACID
  14. VITAMIN D3 [Concomitant]
     Active Substance: CHOLECALCIFEROL

REACTIONS (2)
  - Pneumonia [None]
  - Hospice care [None]
